FAERS Safety Report 8077787-2 (Version None)
Quarter: 2012Q1

REPORT INFORMATION
  Report Type: 
  Country: None (occurrence: None)
  Receive Date: 20120127
  Receipt Date: 20120120
  Transmission Date: 20120608
  Serious: Yes (Other)
  Sender: FDA-Public Use
  Company Number: DE-PFIZER INC-2012001956

PATIENT
  Age: 19 Year
  Sex: Male
  Weight: 70 kg

DRUGS (3)
  1. ETHANOL [Suspect]
     Dosage: UNK
     Dates: start: 20111226, end: 20111226
  2. PANTOPRAZOLE [Suspect]
     Indication: PRODUCT USED FOR UNKNOWN INDICATION
     Dosage: 240 MG, POSSIBLY
     Route: 065
     Dates: start: 20111226, end: 20111226
  3. TETRAZEPAM [Suspect]
     Indication: PRODUCT USED FOR UNKNOWN INDICATION
     Dosage: ONCE, MAX. DOSE 1000 MG.
     Route: 065
     Dates: start: 20111226, end: 20111226

REACTIONS (5)
  - TOXICITY TO VARIOUS AGENTS [None]
  - SUICIDE ATTEMPT [None]
  - INTENTIONAL OVERDOSE [None]
  - MULTIPLE DRUG OVERDOSE INTENTIONAL [None]
  - SOMNOLENCE [None]
